FAERS Safety Report 5979350-3 (Version None)
Quarter: 2008Q4

REPORT INFORMATION
  Report Type: 
  Country: None (occurrence: None)
  Receive Date: 20081204
  Receipt Date: 20081125
  Transmission Date: 20090506
  Serious: Yes (Other)
  Sender: FDA-Public Use
  Company Number: CR-ABBOTT-08P-069-0487607-00

PATIENT
  Age: 50 Year
  Sex: Female

DRUGS (2)
  1. HUMIRA [Suspect]
     Indication: RHEUMATOID ARTHRITIS
     Dosage: 40.0 MG/ 0.8 ML EVERY OTHER WEEK
     Route: 058
     Dates: start: 20081021, end: 20081104
  2. HYDROXYCHLOROQUINE SULFATE [Concomitant]
     Indication: RHEUMATOID ARTHRITIS
     Route: 048
     Dates: end: 20081104

REACTIONS (5)
  - DYSPNOEA [None]
  - FACE OEDEMA [None]
  - HYPERSENSITIVITY [None]
  - LOCALISED OEDEMA [None]
  - PRURITUS GENERALISED [None]
